FAERS Safety Report 16119939 (Version 1)
Quarter: 2019Q1

REPORT INFORMATION
  Report Type: Spontaneous
  Country: FR (occurrence: FR)
  Receive Date: 20190326
  Receipt Date: 20190326
  Transmission Date: 20190418
  Serious: Yes (Other)
  Sender: FDA-Public Use
  Company Number: FR-009507513-1903FRA008007

PATIENT
  Sex: Male
  Weight: 75 kg

DRUGS (1)
  1. KEYTRUDA [Suspect]
     Active Substance: PEMBROLIZUMAB
     Indication: METASTATIC MALIGNANT MELANOMA
     Dosage: 12 MILLIGRAM/KILOGRAM
     Route: 041
     Dates: start: 20180219, end: 20190128

REACTIONS (7)
  - Influenza like illness [Recovered/Resolved]
  - Tremor [Recovered/Resolved]
  - Musculoskeletal pain [Recovered/Resolved]
  - Nervousness [Recovered/Resolved]
  - Hyperthyroidism [Recovered/Resolved]
  - Anti-thyroid antibody positive [Recovered/Resolved]
  - Weight decreased [Recovered/Resolved]

NARRATIVE: CASE EVENT DATE: 2018
